FAERS Safety Report 6754408-X (Version None)
Quarter: 2010Q2

REPORT INFORMATION
  Report Type: 
  Country: None (occurrence: None)
  Receive Date: 20100603
  Receipt Date: 20100525
  Transmission Date: 20101027
  Serious: Yes (Life-Threatening, Hospitalization)
  Sender: FDA-Public Use
  Company Number: US-BAXTER-2010BH010695

PATIENT
  Age: 68 Year
  Sex: Female
  Weight: 62 kg

DRUGS (4)
  1. DIANEAL [Suspect]
     Indication: PERITONEAL DIALYSIS
     Route: 033
     Dates: end: 20100426
  2. DIANEAL [Suspect]
     Route: 033
     Dates: start: 20100430
  3. EXTRANEAL [Suspect]
     Indication: PERITONEAL DIALYSIS
     Route: 033
     Dates: end: 20100426
  4. EXTRANEAL [Suspect]
     Route: 033
     Dates: start: 20100430

REACTIONS (7)
  - CONSTIPATION [None]
  - DEHYDRATION [None]
  - FOOD POISONING [None]
  - GALLBLADDER DISORDER [None]
  - HYPOTENSION [None]
  - SEPSIS [None]
  - UNRESPONSIVE TO STIMULI [None]
